FAERS Safety Report 9494546 (Version 2)
Quarter: 2014Q1

REPORT INFORMATION
  Report Type: Spontaneous
  Country: GB (occurrence: None)
  Receive Date: 20130828
  Receipt Date: 20140124
  Transmission Date: 20141002
  Serious: Yes (Other)
  Sender: FDA-Public Use
  Company Number: KAD201308-001062

PATIENT
  Age: 30 Year
  Sex: Female

DRUGS (3)
  1. RIBAVIRIN [Suspect]
     Indication: HEPATITIS C
     Route: 048
     Dates: start: 20121116
  2. PEGINTERFERON ALFA-2B [Suspect]
     Indication: HEPATITIS C
     Dosage: ONCE WEEKLY, INJECTION
     Dates: start: 20121116
  3. INCIVO [Suspect]
     Indication: HEPATITIS C
     Route: 048
     Dates: start: 20121116

REACTIONS (16)
  - Anaemia [None]
  - Anxiety [None]
  - Cough [None]
  - Diarrhoea [None]
  - Fatigue [None]
  - Haemoglobin decreased [None]
  - Haemorrhoids [None]
  - Hallucination [None]
  - Insomnia [None]
  - Pruritus [None]
  - Nausea [None]
  - Panic attack [None]
  - Malaise [None]
  - Inappropriate schedule of drug administration [None]
  - White blood cell count decreased [None]
  - Red blood cell count decreased [None]
